FAERS Safety Report 5935835-7 (Version None)
Quarter: 2008Q4

REPORT INFORMATION
  Report Type: 
  Country: None (occurrence: None)
  Receive Date: 20081030
  Receipt Date: 20081028
  Transmission Date: 20090506
  Serious: Yes (Death)
  Sender: FDA-Public Use
  Company Number: PHBS2008TW06149

PATIENT
  Age: 59 Year
  Sex: Male

DRUGS (3)
  1. BASILIXIMAB [Suspect]
     Indication: HEART TRANSPLANT
     Dosage: 20 MG/DAY
  2. CYCLOSPORINE [Suspect]
     Indication: HEART TRANSPLANT
     Route: 048
  3. EVEROLIMUS [Suspect]
     Indication: HEART TRANSPLANT

REACTIONS (2)
  - ENTEROBACTER INFECTION [None]
  - SEPSIS [None]
